FAERS Safety Report 9521146 (Version 2)
Quarter: 2014Q1

REPORT INFORMATION
  Report Type: Spontaneous
  Country: US (occurrence: None)
  Receive Date: 20130305
  Receipt Date: 20140306
  Transmission Date: 20141002
  Serious: Yes (Hospitalization, Other)
  Sender: FDA-Public Use
  Company Number: 163-21880-12100798

PATIENT
  Age: 82 Year
  Sex: Female

DRUGS (6)
  1. REVLIMID [Suspect]
     Indication: PLASMA CELL MYELOMA
     Dosage: 25 MG, 21 IN 21 D, PO
     Route: 048
     Dates: start: 20120822
  2. HCTZ [Concomitant]
  3. DEXAMETHASONE (DEXAMETHASONE) [Concomitant]
  4. MEGACE (MEGESTROL ACETATE) [Concomitant]
  5. COMPAZINE (PROCHLORPERAZINE EDISYLATE) [Concomitant]
  6. ASPIRIN [Concomitant]

REACTIONS (5)
  - Local swelling [None]
  - Pain in extremity [None]
  - Night sweats [None]
  - Hypoaesthesia [None]
  - Deep vein thrombosis [None]
